FAERS Safety Report 21147697 (Version 1)
Quarter: 2022Q3

REPORT INFORMATION
  Report Type: Spontaneous
  Country: US (occurrence: None)
  Receive Date: 20220729
  Receipt Date: 20220729
  Transmission Date: 20221027
  Serious: Yes (Hospitalization)
  Sender: FDA-Public Use
  Company Number: None

PATIENT
  Sex: Female
  Weight: 77.9 kg

DRUGS (4)
  1. DACARBAZINE [Suspect]
     Active Substance: DACARBAZINE
     Dates: end: 20220714
  2. DOXORUBICIN HYDROCHLORIDE [Suspect]
     Active Substance: DOXORUBICIN HYDROCHLORIDE
     Dates: end: 20220714
  3. BRENTUXIMAB VEDOTIN [Suspect]
     Active Substance: BRENTUXIMAB VEDOTIN
     Dates: end: 20220714
  4. VINBLASTINE SULFATE [Suspect]
     Active Substance: VINBLASTINE SULFATE
     Dates: end: 20220714

REACTIONS (9)
  - Septic shock [None]
  - Productive cough [None]
  - Dyspnoea [None]
  - Abdominal pain [None]
  - Oxygen saturation decreased [None]
  - Hypotension [None]
  - Positive airway pressure therapy [None]
  - Lung opacity [None]
  - Lethargy [None]

NARRATIVE: CASE EVENT DATE: 20220724
